FAERS Safety Report 8143475-7 (Version None)
Quarter: 2012Q1

REPORT INFORMATION
  Report Type: 
  Country: None (occurrence: None)
  Receive Date: 20120217
  Receipt Date: 20120209
  Transmission Date: 20120608
  Serious: Yes (Other)
  Sender: FDA-Public Use
  Company Number: US-US-EMD SERONO, INC.-7112645

PATIENT
  Sex: Male

DRUGS (2)
  1. IBUPROFEN [Concomitant]
     Indication: PREMEDICATION
  2. REBIF [Suspect]
     Indication: PRODUCT USED FOR UNKNOWN INDICATION
     Route: 058
     Dates: start: 20120104

REACTIONS (4)
  - ROAD TRAFFIC ACCIDENT [None]
  - FATIGUE [None]
  - INJECTION SITE REACTION [None]
  - LUMBAR VERTEBRAL FRACTURE [None]
